FAERS Safety Report 8328637-8 (Version None)
Quarter: 2012Q2

REPORT INFORMATION
  Report Type: 
  Country: None (occurrence: None)
  Receive Date: 20120502
  Receipt Date: 20120427
  Transmission Date: 20120825
  Serious: Yes (Other)
  Sender: FDA-Public Use
  Company Number: SE-SANOFI-AVENTIS-2012SA022943

PATIENT
  Age: 62 Year
  Sex: Female

DRUGS (6)
  1. TRAMADOL HCL [Concomitant]
     Indication: PAIN
  2. TRASTUZUMAB [Suspect]
     Route: 042
     Dates: start: 20110707, end: 20110707
  3. ALVEDON [Concomitant]
     Indication: PAIN
  4. LOPERAMIDE HCL [Concomitant]
     Indication: DIARRHOEA
  5. PRIMPERAN TAB [Concomitant]
  6. DOCETAXEL [Suspect]
     Route: 042
     Dates: start: 20110707, end: 20110707

REACTIONS (4)
  - DYSPNOEA [None]
  - SENSATION OF PRESSURE [None]
  - ASTHMA [None]
  - OBSTRUCTIVE AIRWAYS DISORDER [None]
